FAERS Safety Report 4424912-8 (Version None)
Quarter: 2004Q3

REPORT INFORMATION
  Report Type: 
  Country: None (occurrence: None)
  Receive Date: 20040809
  Receipt Date: 20040803
  Transmission Date: 20050211
  Serious: No
  Sender: FDA-Public Use
  Company Number: A01200403507

PATIENT
  Age: 56 Year
  Sex: Male

DRUGS (7)
  1. PLAVIX [Suspect]
     Dosage: 75 MG OD
     Route: 048
  2. PRAVASTATIN SODIUM [Suspect]
     Dosage: 20 MG OD
     Route: 048
  3. QUESTRAN [Suspect]
     Route: 048
  4. PRAXILENE (NAFTIDROFURYL OXALATE) [Concomitant]
  5. LASIX [Concomitant]
  6. TRANDATE (LABETOLOL HYDROCHLORIDE) [Concomitant]
  7. HYPERIUM (RILMENIDINE) [Concomitant]

REACTIONS (2)
  - BLOOD CREATINE PHOSPHOKINASE INCREASED [None]
  - RHABDOMYOLYSIS [None]
